FAERS Safety Report 5744036-7 (Version None)
Quarter: 2008Q2

REPORT INFORMATION
  Report Type: 
  Country: None (occurrence: None)
  Receive Date: 20080516
  Receipt Date: 20080516
  Transmission Date: 20081010
  Serious: Yes (Other)
  Sender: FDA-Public Use
  Company Number: None

PATIENT
  Sex: Female
  Weight: 81.6475 kg

DRUGS (1)
  1. MIRENA [Suspect]
     Indication: CONTRACEPTION
     Dosage: REGULAR DOSE FOR ADULT INTRA-UTERI
     Route: 015
     Dates: start: 20060501, end: 20070918

REACTIONS (7)
  - DEPRESSION [None]
  - FATIGUE [None]
  - INSOMNIA [None]
  - LOSS OF LIBIDO [None]
  - MOOD SWINGS [None]
  - VAGINAL HAEMORRHAGE [None]
  - WEIGHT INCREASED [None]
